FAERS Safety Report 17005702 (Version 1)
Quarter: 2019Q4

REPORT INFORMATION
  Report Type: Spontaneous
  Country: US (occurrence: US)
  Receive Date: 20191105
  Receipt Date: 20191105
  Transmission Date: 20200122
  Serious: Yes (Life-Threatening)
  Sender: FDA-Public Use
  Company Number: None

PATIENT
  Age: 36 Year
  Sex: Male
  Weight: 63 kg

DRUGS (1)
  1. KRATOM INDO [Suspect]
     Active Substance: HERBALS\MITRAGYNINE
     Indication: BACK PAIN
     Dates: start: 20181001, end: 20191103

REACTIONS (13)
  - Anger [None]
  - Diarrhoea [None]
  - Weight decreased [None]
  - Drug withdrawal syndrome [None]
  - Anxiety [None]
  - Affective disorder [None]
  - Insomnia [None]
  - Drug dependence [None]
  - Loss of personal independence in daily activities [None]
  - Dyskinesia [None]
  - Depression [None]
  - Pruritus [None]
  - Night sweats [None]

NARRATIVE: CASE EVENT DATE: 20191105
